FAERS Safety Report 10068771 (Version 1)
Quarter: 2014Q2

REPORT INFORMATION
  Report Type: Spontaneous
  Country: US (occurrence: US)
  Receive Date: 20140409
  Receipt Date: 20140409
  Transmission Date: 20141212
  Serious: No
  Sender: FDA-Public Use
  Company Number: US-MYLANLABS-2014S1000763

PATIENT
  Age: 59 Year
  Sex: Female
  Weight: 46.27 kg

DRUGS (5)
  1. VALSARTAN AND HYDROCHLOROTHIAZIDE TABLETS [Suspect]
     Indication: BLOOD PRESSURE INCREASED
     Route: 048
     Dates: start: 20121201, end: 20121211
  2. POTASSIUM [Concomitant]
     Route: 048
  3. ALLEGRA [Concomitant]
     Indication: MULTIPLE ALLERGIES
     Route: 048
  4. ATENOLOL [Concomitant]
     Indication: HEART RATE
     Route: 048
  5. VITAMIN B [Concomitant]

REACTIONS (2)
  - Nervousness [Recovered/Resolved]
  - Blood potassium decreased [Recovered/Resolved]
